FAERS Safety Report 20774219 (Version 2)
Quarter: 2023Q2

REPORT INFORMATION
  Report Type: Spontaneous
  Country: CA (occurrence: None)
  Receive Date: 20220502
  Receipt Date: 20230505
  Transmission Date: 20230721
  Serious: Yes (Other)
  Sender: FDA-Public Use
  Company Number: CA-ROCHE-3084303

PATIENT
  Age: 26 Year
  Sex: Female

DRUGS (8)
  1. RITUXIMAB [Suspect]
     Active Substance: RITUXIMAB
     Indication: Focal segmental glomerulosclerosis
     Route: 041
  2. ACETAMINOPHEN [Concomitant]
     Active Substance: ACETAMINOPHEN
     Indication: Product used for unknown indication
     Route: 048
  3. TACROLIMUS [Concomitant]
     Active Substance: TACROLIMUS
     Indication: Product used for unknown indication
     Route: 065
  4. DIPHENHYDRAMINE HYDROCHLORIDE [Concomitant]
     Active Substance: DIPHENHYDRAMINE HYDROCHLORIDE
     Indication: Product used for unknown indication
     Route: 048
  5. METHYLPREDNISOLONE [Concomitant]
     Active Substance: METHYLPREDNISOLONE
     Indication: Product used for unknown indication
     Route: 042
  6. PERINDOPRIL [Concomitant]
     Active Substance: PERINDOPRIL
     Indication: Product used for unknown indication
     Route: 065
  7. PREDNISONE [Concomitant]
     Active Substance: PREDNISONE
     Indication: Product used for unknown indication
     Route: 065
  8. ROSUVASTATIN [Concomitant]
     Active Substance: ROSUVASTATIN
     Indication: Product used for unknown indication
     Route: 065

REACTIONS (8)
  - Cough [Recovered/Resolved]
  - Ear disorder [Recovered/Resolved]
  - Feeling hot [Recovered/Resolved]
  - Off label use [Unknown]
  - Pharyngeal paraesthesia [Recovered/Resolved]
  - Respiratory tract infection [Recovered/Resolved]
  - Rhinorrhoea [Recovered/Resolved]
  - Blood pressure increased [Recovered/Resolved]
